FAERS Safety Report 10886900 (Version 9)
Quarter: 2015Q4

REPORT INFORMATION
  Report Type: Spontaneous
  Country: US (occurrence: US)
  Receive Date: 20150304
  Receipt Date: 20151117
  Transmission Date: 20160304
  Serious: Yes (Other)
  Sender: FDA-Public Use
  Company Number: US-PFIZER INC-2015073105

PATIENT
  Age: 71 Year
  Sex: Male
  Weight: 83 kg

DRUGS (8)
  1. BABY ASPIRIN [Concomitant]
     Active Substance: ASPIRIN
     Dosage: UNK
  2. EFUDEX [Concomitant]
     Active Substance: FLUOROURACIL
     Dosage: UNK
     Route: 061
  3. TAMSULOSIN [Concomitant]
     Active Substance: TAMSULOSIN
     Dosage: 0.4 MG, 1X/DAY
  4. LIPITOR [Concomitant]
     Active Substance: ATORVASTATIN CALCIUM
     Dosage: 10 MG, UNK
  5. VITAMIN D [Concomitant]
     Active Substance: CHOLECALCIFEROL
     Dosage: UNK UNK, 1X/DAY (2000 UNITS)
  6. ACETAMINOPHEN. [Concomitant]
     Active Substance: ACETAMINOPHEN
     Dosage: 500 MG, AS NEEDED
  7. SUTENT [Suspect]
     Active Substance: SUNITINIB MALATE
     Indication: RENAL CANCER METASTATIC
     Dosage: 50 MG, CYCLIC (DAILY FOR 28 DAYS ON AND 14 DAYS OFF)
     Dates: start: 20150220, end: 20151109
  8. FISH OIL [Concomitant]
     Active Substance: FISH OIL
     Dosage: UNK UNK, 1X/DAY (1000 UNITS)

REACTIONS (27)
  - Dizziness [Unknown]
  - Hypertension [Not Recovered/Not Resolved]
  - Haemoglobin decreased [Unknown]
  - Diarrhoea [Not Recovered/Not Resolved]
  - Contusion [Unknown]
  - Hot flush [Unknown]
  - Pain in extremity [Not Recovered/Not Resolved]
  - Arthritis [Unknown]
  - Arteriosclerosis [Unknown]
  - Hair colour changes [Recovering/Resolving]
  - Infection [Unknown]
  - Dyspepsia [Not Recovered/Not Resolved]
  - Glossodynia [Unknown]
  - Epistaxis [Recovered/Resolved]
  - Renal pain [Unknown]
  - Dry skin [Unknown]
  - Pain [Unknown]
  - Squamous cell carcinoma [Unknown]
  - Erythema [Unknown]
  - Skin exfoliation [Unknown]
  - Hyperkeratosis [Unknown]
  - Second primary malignancy [Unknown]
  - Alopecia [Unknown]
  - Stomatitis [Recovered/Resolved]
  - Gastrointestinal hypermotility [Unknown]
  - Blister [Unknown]
  - Skin lesion [Unknown]

NARRATIVE: CASE EVENT DATE: 2015
